FAERS Safety Report 21200309 (Version 3)
Quarter: 2023Q1

REPORT INFORMATION
  Report Type: Report from Study
  Country: US (occurrence: None)
  Receive Date: 20220811
  Receipt Date: 20230109
  Transmission Date: 20230417
  Serious: Yes (Hospitalization, Other)
  Sender: FDA-Public Use
  Company Number: US-ROCHE-3156485

PATIENT
  Age: 61 Year
  Sex: Female
  Weight: 86.9 kg

DRUGS (8)
  1. ATEZOLIZUMAB [Suspect]
     Active Substance: ATEZOLIZUMAB
     Indication: Colon cancer stage III
     Dosage: LAST DATE OF ADMINISTRATION: 18/MAY/2022, 20/APR/2022
     Route: 041
     Dates: start: 20220504
  2. ATEZOLIZUMAB [Suspect]
     Active Substance: ATEZOLIZUMAB
     Indication: Adenocarcinoma of colon
     Dosage: LAST DATE OF ADMINISTRATION: 18/MAY/2022, 20/APR/2022
     Route: 041
     Dates: start: 20220223
  3. FLUOROURACIL [Suspect]
     Active Substance: FLUOROURACIL
     Indication: Adenocarcinoma of colon
     Dosage: LAST ADMINISTERED ON 18/MAY/2022
     Route: 042
     Dates: start: 20220504
  4. FLUOROURACIL [Suspect]
     Active Substance: FLUOROURACIL
     Dosage: LAST ADMINISTERED ON 18/MAY/2022
     Route: 042
     Dates: start: 20220223
  5. LEUCOVORIN CALCIUM [Suspect]
     Active Substance: LEUCOVORIN CALCIUM
     Indication: Adenocarcinoma of colon
     Dosage: LAST ADMINISTERED ON 18/MAY/2022
     Route: 042
     Dates: start: 20220504
  6. LEUCOVORIN CALCIUM [Suspect]
     Active Substance: LEUCOVORIN CALCIUM
     Dosage: LAST ADMINISTERED ON 18/MAY/2022
     Route: 042
     Dates: start: 20220223
  7. OXALIPLATIN [Suspect]
     Active Substance: OXALIPLATIN
     Indication: Adenocarcinoma of colon
     Dosage: LAST ADMINISTERED ON 18/MAY/2022
     Route: 042
     Dates: start: 20220504
  8. OXALIPLATIN [Suspect]
     Active Substance: OXALIPLATIN
     Dosage: LAST ADMINISTERED ON 18/MAY/2022
     Route: 042
     Dates: start: 20220223

REACTIONS (16)
  - Cardiac failure [Recovered/Resolved]
  - Febrile neutropenia [Recovered/Resolved]
  - Enterocolitis infectious [Unknown]
  - Decreased appetite [Recovered/Resolved]
  - Diarrhoea [Unknown]
  - Dyspnoea [Recovered/Resolved]
  - Fall [Recovered/Resolved]
  - Hypokalaemia [Recovered/Resolved]
  - Hypotension [Recovered/Resolved]
  - Hypoxia [Recovered/Resolved]
  - Vomiting [Recovered/Resolved]
  - Troponin increased [Unknown]
  - Hypokalaemia [Unknown]
  - Pyrexia [Recovered/Resolved]
  - Pneumonia [Unknown]
  - Small intestinal obstruction [Recovered/Resolved]

NARRATIVE: CASE EVENT DATE: 20220427
